FAERS Safety Report 7258044-0 (Version None)
Quarter: 2011Q1

REPORT INFORMATION
  Report Type: 
  Country: None (occurrence: None)
  Receive Date: 20110129
  Receipt Date: 20100724
  Transmission Date: 20110831
  Serious: No
  Sender: FDA-Public Use
  Company Number: US-ABBOTT-10P-163-0659762-00

PATIENT
  Age: 41 Year
  Sex: Female

DRUGS (11)
  1. ATIVAN [Concomitant]
     Indication: ANXIETY
  2. NEURONTIN [Concomitant]
     Indication: NEUROPATHY PERIPHERAL
  3. HYDROCODONE [Concomitant]
     Indication: PAIN
     Dosage: 7/5/750MG
  4. HUMIRA [Suspect]
     Indication: CROHN'S DISEASE
     Dates: start: 20100101
  5. LASIX [Concomitant]
     Indication: OEDEMA PERIPHERAL
     Dosage: DAILY
  6. DILANTIN [Concomitant]
     Indication: CONVULSION
  7. CALTRATE D [Concomitant]
     Indication: PRODUCT USED FOR UNKNOWN INDICATION
     Dosage: DAILY
  8. VYVANSE [Concomitant]
     Indication: ATTENTION DEFICIT/HYPERACTIVITY DISORDER
     Dosage: DAILY  DAILY
  9. NAPROXIN [Concomitant]
     Indication: PAIN
  10. POTASSIUM [Concomitant]
     Indication: PRODUCT USED FOR UNKNOWN INDICATION
     Dosage: DAILY
  11. EFFEXOR [Concomitant]
     Indication: DEPRESSION
     Dosage: DAILY

REACTIONS (1)
  - FATIGUE [None]
